FAERS Safety Report 18242752 (Version 3)
Quarter: 2020Q4

REPORT INFORMATION
  Report Type: Other
  Country: US (occurrence: US)
  Receive Date: 20200908
  Receipt Date: 20201030
  Transmission Date: 20210113
  Serious: Yes (Hospitalization, Other)
  Sender: FDA-Public Use
  Company Number: US-AMAG PHARMACEUTICALS, INC.-AMAG202003067

PATIENT

DRUGS (1)
  1. MAKENA [Suspect]
     Active Substance: HYDROXYPROGESTERONE CAPROATE
     Indication: FOETAL EXPOSURE DURING PREGNANCY
     Dosage: 250 MG/ML, WEEKLY
     Route: 064
     Dates: end: 20200830

REACTIONS (2)
  - Premature baby [Recovered/Resolved]
  - Nonreassuring foetal heart rate pattern [Recovered/Resolved]

NARRATIVE: CASE EVENT DATE: 20200830
